FAERS Safety Report 5236078-5 (Version None)
Quarter: 2007Q1

REPORT INFORMATION
  Report Type: 
  Country: None (occurrence: None)
  Receive Date: 20070212
  Receipt Date: 20070201
  Transmission Date: 20070707
  Serious: Yes (Hospitalization)
  Sender: FDA-Public Use
  Company Number: FR-ROCHE-481390

PATIENT
  Age: 48 Year
  Sex: Male

DRUGS (6)
  1. ROCEPHIN [Suspect]
     Indication: DRUG USE FOR UNKNOWN INDICATION
     Dosage: STRENGTH REPORTED AS 2G/40ML. FORMULATION REPORTED AS INJECTABLE SOLUTION. DOSAGE REGIMEN REPORTED +
     Route: 042
     Dates: start: 20061201, end: 20070112
  2. TARGOCID [Suspect]
     Indication: DRUG USE FOR UNKNOWN INDICATION
     Route: 042
     Dates: start: 20061209, end: 20070112
  3. CALCIPARINE [Suspect]
     Indication: DRUG USE FOR UNKNOWN INDICATION
     Route: 058
     Dates: start: 20061209, end: 20070104
  4. LASIX [Concomitant]
     Route: 048
     Dates: start: 20061207
  5. FUMAFER [Concomitant]
     Route: 048
     Dates: start: 20061208, end: 20070115
  6. DI ANTALVIC [Concomitant]
     Route: 048

REACTIONS (1)
  - TOXIC SKIN ERUPTION [None]
